FAERS Safety Report 17056871 (Version 3)
Quarter: 2020Q1

REPORT INFORMATION
  Report Type: Spontaneous
  Country: AR (occurrence: AR)
  Receive Date: 20191121
  Receipt Date: 20200104
  Transmission Date: 20200409
  Serious: Yes (Hospitalization, Other)
  Sender: FDA-Public Use
  Company Number: AR-AMGEN-ARGSP2019192611

PATIENT
  Age: 75 Year
  Sex: Female

DRUGS (4)
  1. ENBREL [Suspect]
     Active Substance: ETANERCEPT
     Indication: RHEUMATOID ARTHRITIS
     Dosage: 50 MILLIGRAM, ONE DOSE WEEKLY
     Route: 065
     Dates: start: 20151020
  2. POLIRREUMIN [Concomitant]
     Dosage: 2 DOSAGE FORM, DAILY
  3. KABIAN [Concomitant]
     Active Substance: PREGABALIN
     Dosage: 100 MILLIGRAM, DAILY
  4. IBUPROFEN. [Concomitant]
     Active Substance: IBUPROFEN
     Dosage: 1 DOSAGE FORM, EVERY 3 OR 4 DAYS

REACTIONS (4)
  - Pelvic fracture [Recovering/Resolving]
  - Road traffic accident [Recovered/Resolved]
  - Mobility decreased [Unknown]
  - Humerus fracture [Recovering/Resolving]

NARRATIVE: CASE EVENT DATE: 201910
